FAERS Safety Report 12628349 (Version 1)
Quarter: 2016Q3

REPORT INFORMATION
  Report Type: Spontaneous
  Country: US (occurrence: None)
  Receive Date: 20160805
  Receipt Date: 20160805
  Transmission Date: 20161109
  Serious: Yes (Hospitalization)
  Sender: FDA-Public Use
  Company Number: None

PATIENT
  Age: 61 Year
  Sex: Female
  Weight: 56.7 kg

DRUGS (5)
  1. ALEVE [Concomitant]
     Active Substance: NAPROXEN SODIUM
  2. VITAMINS [Concomitant]
     Active Substance: VITAMINS
  3. SEPTOCAINE [Suspect]
     Active Substance: ARTICAINE HYDROCHLORIDE\EPINEPHRINE BITARTRATE
     Indication: ARTIFICIAL CROWN PROCEDURE
     Dosage: 1.5 CARPULES INJECTION
     Dates: start: 20160728, end: 20160728
  4. LEVOTHYROXINE. [Concomitant]
     Active Substance: LEVOTHYROXINE
  5. ALONDRONATE [Concomitant]

REACTIONS (7)
  - Panic attack [None]
  - Somnolence [None]
  - Nausea [None]
  - Chest discomfort [None]
  - Asthenia [None]
  - Palpitations [None]
  - Nervousness [None]

NARRATIVE: CASE EVENT DATE: 20160728
